FAERS Safety Report 11574649 (Version 1)
Quarter: 2015Q3

REPORT INFORMATION
  Report Type: Spontaneous
  Country: US (occurrence: None)
  Receive Date: 20150928
  Receipt Date: 20150928
  Transmission Date: 20151125
  Serious: Yes (Other)
  Sender: FDA-Public Use
  Company Number: None

PATIENT
  Age: 58 Year
  Sex: Female
  Weight: 113.4 kg

DRUGS (6)
  1. LIPITOR [Concomitant]
     Active Substance: ATORVASTATIN CALCIUM
  2. CHANTIX [Suspect]
     Active Substance: VARENICLINE TARTRATE
     Indication: SMOKING CESSATION THERAPY
  3. SYNTHROID [Concomitant]
     Active Substance: LEVOTHYROXINE SODIUM
  4. XAMAX [Concomitant]
  5. FIBER [Concomitant]
     Active Substance: PSYLLIUM HUSK
  6. MANY HEAD ACHE REMEDIES [Concomitant]

REACTIONS (10)
  - Headache [None]
  - Nausea [None]
  - Nightmare [None]
  - Sleep disorder [None]
  - Fatigue [None]
  - Rash [None]
  - Quality of life decreased [None]
  - Irritability [None]
  - Anger [None]
  - Personality change [None]

NARRATIVE: CASE EVENT DATE: 20150911
